FAERS Safety Report 6661034-X (Version None)
Quarter: 2010Q1

REPORT INFORMATION
  Report Type: 
  Country: None (occurrence: None)
  Receive Date: 20100331
  Receipt Date: 20100324
  Transmission Date: 20100710
  Serious: No
  Sender: FDA-Public Use
  Company Number: JP-ROCHE-400304

PATIENT
  Sex: Female

DRUGS (5)
  1. TAMIFLU [Suspect]
     Dosage: DOSAGE REGIMEN REPORTED AS 150 MG.
     Route: 048
     Dates: start: 20050310, end: 20050314
  2. PL [Concomitant]
     Route: 048
     Dates: start: 20050221, end: 20050223
  3. PONTAL [Concomitant]
     Route: 048
     Dates: start: 20050221, end: 20050223
  4. UNASYN [Concomitant]
     Route: 048
     Dates: start: 20050221, end: 20050223
  5. JEOASE [Concomitant]
     Route: 048
     Dates: start: 20050221, end: 20050223

REACTIONS (2)
  - NO ADVERSE EVENT [None]
  - PREGNANCY [None]
